FAERS Safety Report 4640907-3 (Version None)
Quarter: 2005Q2

REPORT INFORMATION
  Report Type: 
  Country: None (occurrence: None)
  Receive Date: 20050324
  Receipt Date: 20050120
  Transmission Date: 20051028
  Serious: Yes (Hospitalization)
  Sender: FDA-Public Use
  Company Number: 211898

PATIENT
  Sex: Male

DRUGS (2)
  1. AVASTIN [Suspect]
     Dosage: INTRAVENOUS
     Route: 042
  2. CHEMOTHERAPY NOS (ANTINEOPLASTIC AGENT NOS) [Concomitant]

REACTIONS (1)
  - PULMONARY EMBOLISM [None]
